FAERS Safety Report 11038273 (Version 1)
Quarter: 2015Q2

REPORT INFORMATION
  Report Type: Report from Study
  Country: IL (occurrence: IL)
  Receive Date: 20150416
  Receipt Date: 20150416
  Transmission Date: 20150821
  Serious: Yes (Hospitalization)
  Sender: FDA-Public Use
  Company Number: IL-SA-2015SA046120

PATIENT
  Age: 79 Year
  Sex: Male

DRUGS (8)
  1. VITAMIN D [Concomitant]
     Active Substance: CHOLECALCIFEROL
  2. NORMALOL [Concomitant]
     Active Substance: ATENOLOL
     Route: 048
     Dates: start: 20050701, end: 20110808
  3. FLUDARABINE PHOSPHATE. [Suspect]
     Active Substance: FLUDARABINE PHOSPHATE
     Indication: CHRONIC LYMPHOCYTIC LEUKAEMIA
     Dosage: FREQUENCY: 3 DAYS PER 28  DAYS
     Route: 042
     Dates: start: 20110718
  4. RITUXIMAB [Suspect]
     Active Substance: RITUXIMAB
     Indication: CHRONIC LYMPHOCYTIC LEUKAEMIA
     Dosage: FREQUENCY: ONCE IN 28 DAYS
     Route: 042
     Dates: start: 20110725
  5. SIMVACOR [Concomitant]
     Active Substance: SIMVASTATIN
     Route: 048
     Dates: start: 20050701, end: 20110808
  6. TERBINAFINE [Concomitant]
     Active Substance: TERBINAFINE
  7. CYCLOPHOSPHAMIDE. [Suspect]
     Active Substance: CYCLOPHOSPHAMIDE
     Indication: CHRONIC LYMPHOCYTIC LEUKAEMIA
     Dosage: FREQUENCY: 3 DAYS PER 28 DAYS
     Route: 042
     Dates: start: 20110718
  8. CYANOCOBALAMIN. [Concomitant]
     Active Substance: CYANOCOBALAMIN

REACTIONS (2)
  - Febrile neutropenia [Not Recovered/Not Resolved]
  - Pneumonia [Recovered/Resolved]

NARRATIVE: CASE EVENT DATE: 20110801
